FAERS Safety Report 20129829 (Version 1)
Quarter: 2021Q4

REPORT INFORMATION
  Report Type: Report from Study
  Country: CO (occurrence: CO)
  Receive Date: 20211130
  Receipt Date: 20211130
  Transmission Date: 20220303
  Serious: Yes (Hospitalization, Other)
  Sender: FDA-Public Use
  Company Number: CO-ELI_LILLY_AND_COMPANY-CO202111011132

PATIENT
  Sex: Female

DRUGS (1)
  1. FORTEO [Suspect]
     Active Substance: TERIPARATIDE
     Indication: Osteoporosis
     Dosage: 20 UG, DAILY
     Route: 058
     Dates: start: 20210828

REACTIONS (12)
  - Thrombosis [Unknown]
  - Eschar [Unknown]
  - Chronic kidney disease [Unknown]
  - Dementia Alzheimer^s type [Unknown]
  - Myocardial infarction [Unknown]
  - Bradycardia [Unknown]
  - Polycythaemia [Unknown]
  - Pulmonary embolism [Unknown]
  - Feeling hot [Recovered/Resolved]
  - Feeling cold [Recovered/Resolved]
  - Inflammation [Unknown]
  - Blood pressure decreased [Unknown]

NARRATIVE: CASE EVENT DATE: 20210101
